FAERS Safety Report 8570219-7 (Version None)
Quarter: 2012Q3

REPORT INFORMATION
  Report Type: 
  Country: None (occurrence: None)
  Receive Date: 20120803
  Receipt Date: 20120717
  Transmission Date: 20120928
  Serious: No
  Sender: FDA-Public Use
  Company Number: US-ASTRAZENECA-2012SE50532

PATIENT
  Age: 50 Year
  Sex: Female
  Weight: 72.1 kg

DRUGS (11)
  1. I-COOL [Concomitant]
     Indication: NIGHT SWEATS
  2. FISH OIL [Concomitant]
  3. VITAMIN B-12 [Concomitant]
  4. LEXAPRO [Concomitant]
  5. VICODIN [Concomitant]
  6. NEXIUM [Suspect]
     Indication: GASTROOESOPHAGEAL REFLUX DISEASE
     Route: 048
  7. COLON HEALTH PILL [Concomitant]
  8. OMEPRAZOLE [Suspect]
     Route: 048
  9. IBUPROFEN [Concomitant]
  10. FLEXERIL [Concomitant]
  11. MULTI-VITAMINS [Concomitant]

REACTIONS (5)
  - VISUAL IMPAIRMENT [None]
  - GASTROOESOPHAGEAL REFLUX DISEASE [None]
  - INTENTIONAL DRUG MISUSE [None]
  - FIBROMYALGIA [None]
  - DRUG INEFFECTIVE [None]
